FAERS Safety Report 11548545 (Version 1)
Quarter: 2015Q3

REPORT INFORMATION
  Report Type: Spontaneous
  Country: US (occurrence: US)
  Receive Date: 20150924
  Receipt Date: 20150924
  Transmission Date: 20151125
  Serious: No
  Sender: FDA-Public Use
  Company Number: US-INCYTE CORPORATION-2015IN001099

PATIENT
  Sex: Male

DRUGS (2)
  1. JAKAFI [Suspect]
     Active Substance: RUXOLITINIB
     Indication: OFF LABEL USE
     Dosage: 20 MG, QD
     Route: 048
     Dates: start: 201503
  2. JAKAFI [Suspect]
     Active Substance: RUXOLITINIB
     Indication: ALOPECIA TOTALIS
     Dosage: 20 MG, BID
     Route: 048
     Dates: start: 20141012, end: 201503

REACTIONS (2)
  - Therapeutic response unexpected [Recovered/Resolved]
  - Off label use [Recovering/Resolving]

NARRATIVE: CASE EVENT DATE: 2010
